FAERS Safety Report 12890774 (Version 1)
Quarter: 2016Q4

REPORT INFORMATION
  Report Type: Spontaneous
  Country: US (occurrence: US)
  Receive Date: 20161025
  Receipt Date: 20161025
  Transmission Date: 20170207
  Serious: No
  Sender: FDA-Public Use
  Company Number: None

PATIENT
  Age: 77 Year
  Sex: Female

DRUGS (1)
  1. ENBREL [Suspect]
     Active Substance: ETANERCEPT
     Indication: RHEUMATOID ARTHRITIS
     Route: 058
     Dates: start: 20150824

REACTIONS (5)
  - Headache [None]
  - Erythema [None]
  - Hyperhidrosis [None]
  - Chills [None]
  - Nausea [None]

NARRATIVE: CASE EVENT DATE: 20161020
